FAERS Safety Report 5946436-9 (Version None)
Quarter: 2008Q4

REPORT INFORMATION
  Report Type: 
  Country: None (occurrence: None)
  Receive Date: 20081110
  Receipt Date: 20081105
  Transmission Date: 20090506
  Serious: Yes (Other)
  Sender: FDA-Public Use
  Company Number: US-ASTRAZENECA-2006UW27651

PATIENT
  Age: 550 Month
  Sex: Male
  Weight: 109.8 kg

DRUGS (6)
  1. SEROQUEL [Suspect]
     Indication: BIPOLAR DISORDER
     Dosage: 100 MG - 200 MG
     Route: 048
     Dates: start: 20050609, end: 20060401
  2. SEROQUEL [Suspect]
     Indication: SCHIZOPHRENIA
     Dosage: 100 MG - 200 MG
     Route: 048
     Dates: start: 20050609, end: 20060401
  3. MIRTAZAPINE [Concomitant]
     Dates: start: 20060210
  4. PAXIL [Concomitant]
  5. TRAZODONE HCL [Concomitant]
  6. CLONAZEPAM [Concomitant]

REACTIONS (7)
  - CHEST PAIN [None]
  - DIABETES MELLITUS [None]
  - DIABETIC KETOACIDOSIS [None]
  - DIABETIC RETINOPATHY [None]
  - GLAUCOMA [None]
  - TARDIVE DYSKINESIA [None]
  - WEIGHT INCREASED [None]
